FAERS Safety Report 13911138 (Version 1)
Quarter: 2017Q3

REPORT INFORMATION
  Report Type: Spontaneous
  Country: JP (occurrence: JP)
  Receive Date: 20170828
  Receipt Date: 20170828
  Transmission Date: 20171127
  Serious: Yes (Death, Other)
  Sender: FDA-Public Use
  Company Number: JP-BIOGEN-2017BI00448432

PATIENT
  Age: 85 Year
  Sex: Male

DRUGS (1)
  1. AVONEX [Suspect]
     Active Substance: INTERFERON BETA-1A
     Indication: MALIGNANT MELANOMA
     Route: 065

REACTIONS (3)
  - Metastases to bone marrow [Fatal]
  - Metastases to liver [Fatal]
  - Intentional product use issue [Unknown]
